FAERS Safety Report 7995999-0 (Version None)
Quarter: 2011Q4

REPORT INFORMATION
  Report Type: 
  Country: None (occurrence: None)
  Receive Date: 20111220
  Receipt Date: 20111208
  Transmission Date: 20120403
  Serious: Yes (Disabling)
  Sender: FDA-Public Use
  Company Number: PHHY2011JP108184

PATIENT
  Age: 92 Year
  Sex: Female

DRUGS (4)
  1. RIVASTIGMINE [Suspect]
     Indication: DEMENTIA ALZHEIMER'S TYPE
     Dosage: UNK UKN, UNK
     Route: 062
     Dates: start: 20110728
  2. YOKUKAN-SAN [Concomitant]
     Dosage: UNK
     Dates: start: 20100801
  3. RISPERDAL [Concomitant]
     Dosage: UNK
     Dates: start: 20100401
  4. RIVASTIGMINE [Suspect]
     Dosage: 13.5 MG, DAILY
     Route: 062
     Dates: end: 20111201

REACTIONS (4)
  - RASH PRURITIC [None]
  - PEMPHIGOID [None]
  - ERYTHEMA [None]
  - BLISTER [None]
